FAERS Safety Report 6298063-4 (Version None)
Quarter: 2009Q3

REPORT INFORMATION
  Report Type: 
  Country: None (occurrence: None)
  Receive Date: 20090805
  Receipt Date: 20090727
  Transmission Date: 20100115
  Serious: Yes (Hospitalization)
  Sender: FDA-Public Use
  Company Number: CN-NOVOPROD-288446

PATIENT
  Age: 53 Year
  Sex: Female
  Weight: 64.2 kg

DRUGS (1)
  1. NOVOMIX 30 FLEXPEN [Suspect]
     Indication: TYPE 2 DIABETES MELLITUS
     Dosage: 38 IU, QD (20+18)
     Route: 058

REACTIONS (4)
  - DIABETIC KETOACIDOSIS [None]
  - GLYCOSYLATED HAEMOGLOBIN INCREASED [None]
  - INCORRECT STORAGE OF DRUG [None]
  - PRODUCT QUALITY ISSUE [None]
